FAERS Safety Report 23350120 (Version 2)
Quarter: 2024Q1

REPORT INFORMATION
  Report Type: Spontaneous
  Country: US (occurrence: US)
  Receive Date: 20231229
  Receipt Date: 20240329
  Transmission Date: 20240409
  Serious: Yes (Other)
  Sender: FDA-Public Use
  Company Number: US-BRISTOL-MYERS SQUIBB COMPANY-2023-185527

PATIENT
  Age: 53 Year
  Sex: Male
  Weight: 86.18 kg

DRUGS (5)
  1. OPDIVO [Suspect]
     Active Substance: NIVOLUMAB
     Indication: Skin neoplasm excision
     Dosage: DOSE : 5;     FREQ : EVERY 30 DAYS
     Route: 042
     Dates: start: 2023, end: 20230807
  2. PREDNISONE [Concomitant]
     Active Substance: PREDNISONE
     Indication: Product used for unknown indication
     Dosage: FREQUENCY- 10MG FOR 3-4 MONTHS?(BUMPED UP TO 40MG FOR 10 DAYS ABOUT 3-4 WEEKS AGO)
  3. PREDNISONE [Concomitant]
     Active Substance: PREDNISONE
     Indication: Product used for unknown indication
  4. IBUPROFEN [Concomitant]
     Active Substance: IBUPROFEN
     Indication: Product used for unknown indication
     Dosage: IBUPROFEN 800MG DAILY, (MORNING AND NIGHT)
  5. TRAMADOL [Concomitant]
     Active Substance: TRAMADOL\TRAMADOL HYDROCHLORIDE
     Indication: Product used for unknown indication
     Dosage: TRAMADOL 50MG DAILY (MORNING AND NIGHT)

REACTIONS (6)
  - Pain in extremity [Unknown]
  - Bursitis [Unknown]
  - Joint stiffness [Unknown]
  - Swelling [Recovering/Resolving]
  - Pain [Unknown]
  - Carpal tunnel syndrome [Unknown]

NARRATIVE: CASE EVENT DATE: 20230101
